FAERS Safety Report 25095026 (Version 1)
Quarter: 2025Q1

REPORT INFORMATION
  Report Type: Spontaneous
  Country: GB (occurrence: GB)
  Receive Date: 20250319
  Receipt Date: 20250319
  Transmission Date: 20250409
  Serious: Yes (Hospitalization, Other)
  Sender: PFIZER
  Company Number: None

PATIENT
  Age: 43 Year
  Sex: Female
  Weight: 71 kg

DRUGS (6)
  1. RITUXIMAB [Suspect]
     Active Substance: RITUXIMAB
  2. PREDNISOLONE [Concomitant]
     Active Substance: PREDNISOLONE
     Dosage: SIX TO BE TAKEN EACH DAY
     Dates: start: 20250121, end: 20250126
  3. CODEINE PHOSPHATE [Concomitant]
     Active Substance: CODEINE PHOSPHATE
     Dates: start: 20250228, end: 20250307
  4. FLUOXETINE [Concomitant]
     Active Substance: FLUOXETINE HYDROCHLORIDE
     Indication: Depressed mood
     Dosage: TAKE ONE DAILY TO PREVENT LOWMOOD
     Dates: start: 20250304
  5. COCODAMOL [Concomitant]
     Active Substance: ACETAMINOPHEN\CODEINE PHOSPHATE
     Dates: start: 20241202, end: 20250219
  6. CALCIUM CARBONATE [Concomitant]
     Active Substance: CALCIUM CARBONATE
     Indication: Bone disorder
     Dosage: CHEW ONE TWICE DAILY TO HELP PROTECT BONES
     Route: 048
     Dates: start: 20250103

REACTIONS (3)
  - Swollen tongue [Unknown]
  - Swelling [Unknown]
  - Drug hypersensitivity [Recovered/Resolved]
